FAERS Safety Report 19126348 (Version 1)
Quarter: 2021Q2

REPORT INFORMATION
  Report Type: Spontaneous
  Country: US (occurrence: US)
  Receive Date: 20210413
  Receipt Date: 20210413
  Transmission Date: 20210717
  Serious: Yes (Other)
  Sender: FDA-Public Use
  Company Number: US-TRIS PHARMA, INC.-21US009362

PATIENT

DRUGS (3)
  1. PROMETHAZINE HCL + CODEINE PHOSPHATE [Suspect]
     Active Substance: CODEINE PHOSPHATE\PROMETHAZINE HYDROCHLORIDE
     Indication: COUGH
  2. OTHER THERAPEUTIC PRODUCTS [Concomitant]
     Active Substance: UNSPECIFIED INGREDIENT
     Indication: GASTROOESOPHAGEAL REFLUX DISEASE
     Route: 065
  3. PROMETHAZINE HCL + CODEINE PHOSPHATE [Suspect]
     Active Substance: CODEINE PHOSPHATE\PROMETHAZINE HYDROCHLORIDE
     Indication: PNEUMONIA
     Dosage: 1 DOSAGE FORM, SINGLE
     Route: 048
     Dates: start: 202010, end: 202010

REACTIONS (6)
  - Pharyngeal swelling [Recovered/Resolved]
  - Product taste abnormal [Unknown]
  - Allergic reaction to excipient [Recovered/Resolved]
  - Swollen tongue [Recovered/Resolved]
  - Product odour abnormal [Unknown]
  - Urticaria [Recovered/Resolved]

NARRATIVE: CASE EVENT DATE: 202010
